FAERS Safety Report 6435201-4 (Version None)
Quarter: 2009Q4

REPORT INFORMATION
  Report Type: 
  Country: None (occurrence: None)
  Receive Date: 20091106
  Receipt Date: 20091024
  Transmission Date: 20100525
  Serious: Yes (Hospitalization)
  Sender: FDA-Public Use
  Company Number: SPV1-2009-02163

PATIENT
  Age: 82 Year
  Sex: Female

DRUGS (2)
  1. ANAGRELIDE HCL [Suspect]
     Indication: ESSENTIAL THROMBOCYTHAEMIA
     Dates: end: 20080101
  2. HYDROXYUREA [Concomitant]

REACTIONS (14)
  - ABDOMINAL PAIN UPPER [None]
  - ARRHYTHMIA [None]
  - ARTHRALGIA [None]
  - C-REACTIVE PROTEIN INCREASED [None]
  - COUGH [None]
  - DIARRHOEA [None]
  - FLUID INTAKE REDUCED [None]
  - HYPERTENSION [None]
  - HYPOPHAGIA [None]
  - LEUKOCYTOSIS [None]
  - MALAISE [None]
  - MUCOUS STOOLS [None]
  - PYREXIA [None]
  - RESPIRATORY FAILURE [None]
